FAERS Safety Report 8576659-4 (Version None)
Quarter: 2012Q3

REPORT INFORMATION
  Report Type: 
  Country: None (occurrence: None)
  Receive Date: 20120807
  Receipt Date: 20120801
  Transmission Date: 20120928
  Serious: Yes (Hospitalization)
  Sender: FDA-Public Use
  Company Number: BE-PFIZER INC-2012187900

PATIENT
  Sex: Female
  Weight: 78 kg

DRUGS (10)
  1. INDAPAMIDE [Concomitant]
     Indication: HYPERTENSION
     Dosage: UNK
     Dates: start: 20030718
  2. CYCLOCUR [Concomitant]
     Indication: BLOOD FOLLICLE STIMULATING HORMONE DECREASED
  3. LEVOTHYROXINE [Concomitant]
     Indication: BLOOD THYROID STIMULATING HORMONE DECREASED
     Dosage: UNK
     Dates: start: 19951215
  4. METHIMAZOLE [Concomitant]
     Indication: BASEDOW'S DISEASE
     Dosage: UNK
     Dates: start: 19970425
  5. DESMOPRESSIN [Concomitant]
     Indication: BLOOD ANTIDIURETIC HORMONE DECREASED
     Dosage: UNK
     Dates: start: 19980915
  6. METHYLPREDNISOLONE [Concomitant]
     Indication: ENDOCRINE OPHTHALMOPATHY
     Dosage: UNK
     Dates: start: 20010305
  7. GENOTROPIN [Suspect]
     Indication: HYPOTHYROIDISM
     Dosage: 0.2 MG, 7/WK
     Route: 058
     Dates: start: 20031205
  8. CYCLOCUR [Concomitant]
     Indication: BLOOD LUTEINISING HORMONE DECREASED
     Dosage: UNK
     Dates: start: 19991015
  9. CABERGOLINE [Concomitant]
     Indication: ADRENAL ADENOMA
     Dosage: UNK
     Dates: start: 19940912
  10. HYDROCORTISONE [Concomitant]
     Indication: BLOOD CORTICOTROPHIN DECREASED
     Dosage: UNK
     Dates: start: 19970319

REACTIONS (1)
  - PNEUMONIA [None]
